FAERS Safety Report 14580293 (Version 2)
Quarter: 2018Q1

REPORT INFORMATION
  Report Type: Report from Study
  Country: US (occurrence: US)
  Receive Date: 20180228
  Receipt Date: 20180308
  Transmission Date: 20180509
  Serious: Yes (Hospitalization, Other)
  Sender: FDA-Public Use
  Company Number: US-GILEAD-2018-0323103

PATIENT
  Age: 71 Year
  Sex: Female
  Weight: 91.16 kg

DRUGS (9)
  1. HYDRALAZINE [Concomitant]
     Active Substance: HYDRALAZINE HYDROCHLORIDE
  2. MAGNESIUM CITRATE. [Concomitant]
     Active Substance: MAGNESIUM CITRATE
  3. METOPROLOL. [Concomitant]
     Active Substance: METOPROLOL
  4. AMBRISENTAN [Suspect]
     Active Substance: AMBRISENTAN
     Indication: PRODUCT USED FOR UNKNOWN INDICATION
     Dosage: 10 MG, QD
     Route: 048
     Dates: start: 20171010
  5. AMLODIPINE [Concomitant]
     Active Substance: AMLODIPINE BESYLATE
  6. BIOTIN [Concomitant]
     Active Substance: BIOTIN
  7. VITAMIN D3 [Concomitant]
     Active Substance: CHOLECALCIFEROL
  8. METOLAZONE. [Concomitant]
     Active Substance: METOLAZONE
  9. PROBIOTIC                          /06395501/ [Concomitant]
     Active Substance: BIFIDOBACTERIUM ANIMALIS LACTIS

REACTIONS (7)
  - Head injury [Unknown]
  - Lymphoedema [Unknown]
  - Oedema [Unknown]
  - Cardiac failure congestive [Unknown]
  - Fall [Unknown]
  - Renal failure [Unknown]
  - Oedema peripheral [Unknown]
